FAERS Safety Report 14513805 (Version 1)
Quarter: 2018Q1

REPORT INFORMATION
  Report Type: Spontaneous
  Country: US (occurrence: US)
  Receive Date: 20180208
  Receipt Date: 20180208
  Transmission Date: 20180509
  Serious: Yes (Other)
  Sender: FDA-Public Use
  Company Number: None

PATIENT
  Age: 66 Year
  Sex: Female
  Weight: 117.04 kg

DRUGS (16)
  1. CAPECITABINE. [Suspect]
     Active Substance: CAPECITABINE
     Indication: BREAST CANCER
     Route: 048
     Dates: start: 20171222
  2. AMLODIPINE [Concomitant]
     Active Substance: AMLODIPINE BESYLATE
  3. LETROZOLE. [Concomitant]
     Active Substance: LETROZOLE
  4. IBRANCE [Concomitant]
     Active Substance: PALBOCICLIB
  5. CLOTRIMAZOLE. [Concomitant]
     Active Substance: CLOTRIMAZOLE
  6. LISINOPRIL. [Concomitant]
     Active Substance: LISINOPRIL
  7. NYSTATIN. [Concomitant]
     Active Substance: NYSTATIN
  8. LEVOTHYROXINE. [Concomitant]
     Active Substance: LEVOTHYROXINE
  9. NOVOLOG [Concomitant]
     Active Substance: INSULIN ASPART
  10. HYDROCHLOROTHIAZIDE. [Concomitant]
     Active Substance: HYDROCHLOROTHIAZIDE
  11. LANTUS [Concomitant]
     Active Substance: INSULIN GLARGINE
  12. NAPROXEN. [Concomitant]
     Active Substance: NAPROXEN
  13. PREDNISONE. [Concomitant]
     Active Substance: PREDNISONE
  14. TYLENOL WITH CODEINE [Concomitant]
     Active Substance: ACETAMINOPHEN\CODEINE PHOSPHATE
  15. MOVANTIK [Concomitant]
     Active Substance: NALOXEGOL OXALATE
  16. VENTOLIN [Concomitant]
     Active Substance: ALBUTEROL SULFATE

REACTIONS (2)
  - Dyspnoea [None]
  - Constipation [None]
